FAERS Safety Report 15331061 (Version 1)
Quarter: 2018Q3

REPORT INFORMATION
  Report Type: Report from Study
  Country: US (occurrence: US)
  Receive Date: 20180829
  Receipt Date: 20180829
  Transmission Date: 20181010
  Serious: Yes (Other)
  Sender: FDA-Public Use
  Company Number: US-SA-2018SA203469

PATIENT
  Age: 29 Year
  Sex: Male

DRUGS (1)
  1. AGALSIDASE BETA [Suspect]
     Active Substance: AGALSIDASE BETA
     Indication: FABRY^S DISEASE
     Dosage: 30.00 UNK, Q1
     Route: 041
     Dates: start: 20180717

REACTIONS (5)
  - Heart rate decreased [Unknown]
  - Deafness [Unknown]
  - Product use issue [Unknown]
  - Drug administration error [Unknown]
  - Fatigue [Unknown]

NARRATIVE: CASE EVENT DATE: 20180720
